FAERS Safety Report 4371162-X (Version None)
Quarter: 2004Q2

REPORT INFORMATION
  Report Type: 
  Country: None (occurrence: None)
  Receive Date: 20040604
  Receipt Date: 20040426
  Transmission Date: 20050107
  Serious: Yes (Death, Other)
  Sender: FDA-Public Use
  Company Number: ES-BRISTOL-MYERS SQUIBB COMPANY-12571519

PATIENT
  Age: 60 Year
  Sex: Male

DRUGS (5)
  1. ZERIT [Suspect]
     Indication: HIV INFECTION
     Route: 048
     Dates: start: 20030201, end: 20040101
  2. EPIVIR [Concomitant]
     Indication: HIV INFECTION
     Dates: start: 20030201, end: 20040101
  3. KALETRA [Concomitant]
     Indication: HIV INFECTION
     Dosage: DOSAGE VALUE = LOPINAVIR 800 MG + RITONAVIR 1200 MG
     Dates: start: 20030201, end: 20040101
  4. FLUCONAZOLE [Concomitant]
     Indication: PROPHYLAXIS
     Dates: start: 20030101, end: 20040101
  5. SEPTRA [Concomitant]
     Indication: PROPHYLAXIS
     Dates: start: 20030101, end: 20040101

REACTIONS (4)
  - LACTIC ACIDOSIS [None]
  - NEUROPATHY PERIPHERAL [None]
  - RESPIRATORY DISTRESS [None]
  - SHOCK [None]
